FAERS Safety Report 13833386 (Version 1)
Quarter: 2017Q3

REPORT INFORMATION
  Report Type: Report from Study
  Country: US (occurrence: US)
  Receive Date: 20170803
  Receipt Date: 20170803
  Transmission Date: 20171127
  Serious: Yes (Hospitalization, Other)
  Sender: FDA-Public Use
  Company Number: US-BEH-2017082459

PATIENT
  Sex: Female
  Weight: 2.94 kg

DRUGS (6)
  1. BLINDED ALBUMIN 5% [Suspect]
     Active Substance: ALBUMIN HUMAN
     Dosage: 184.4 ML, QMT
     Route: 064
     Dates: start: 20170606
  2. ALBUMINAR-5 [Suspect]
     Active Substance: ALBUMIN HUMAN
     Dosage: 184.4 ML, QMT
     Route: 064
     Dates: start: 20170606
  3. ALBUMINAR-5 [Suspect]
     Active Substance: ALBUMIN HUMAN
     Indication: PROPHYLAXIS
     Dosage: 184.4 ML, QMT
     Route: 064
     Dates: start: 20170215
  4. CYTOGAM [Suspect]
     Active Substance: HUMAN CYTOMEGALOVIRUS IMMUNE GLOBULIN
     Indication: PROPHYLAXIS
     Dosage: 184.4 ML, QMT
     Route: 064
     Dates: start: 20170215
  5. BLINDED ALBUMIN 5% [Suspect]
     Active Substance: ALBUMIN HUMAN
     Indication: PROPHYLAXIS
     Dosage: 184.4 ML, QMT
     Route: 064
     Dates: start: 20170215
  6. CYTOGAM [Suspect]
     Active Substance: HUMAN CYTOMEGALOVIRUS IMMUNE GLOBULIN
     Dosage: 184.4 ML, QMT
     Route: 064
     Dates: start: 20170606

REACTIONS (2)
  - Premature baby [Unknown]
  - Respiratory distress [Unknown]

NARRATIVE: CASE EVENT DATE: 20170705
